FAERS Safety Report 18407019 (Version 1)
Quarter: 2020Q4

REPORT INFORMATION
  Report Type: Spontaneous
  Country: GB (occurrence: GB)
  Receive Date: 20201020
  Receipt Date: 20201020
  Transmission Date: 20210114
  Serious: Yes (Other)
  Sender: FDA-Public Use
  Company Number: GB-ABBVIE-20K-167-3616527-00

PATIENT
  Age: 47 Year
  Sex: Male

DRUGS (31)
  1. LEFLUNOMIDE. [Suspect]
     Active Substance: LEFLUNOMIDE
     Indication: PRODUCT USED FOR UNKNOWN INDICATION
     Route: 065
     Dates: start: 201403
  2. HYDROXYCHLOROQUINE [Suspect]
     Active Substance: HYDROXYCHLOROQUINE
     Indication: PRODUCT USED FOR UNKNOWN INDICATION
     Route: 065
  3. SULFASALAZINE. [Suspect]
     Active Substance: SULFASALAZINE
     Route: 065
     Dates: start: 201811, end: 201812
  4. TOCILIZUMAB. [Concomitant]
     Active Substance: TOCILIZUMAB
     Indication: PRODUCT USED FOR UNKNOWN INDICATION
     Route: 058
     Dates: start: 201804, end: 201807
  5. PREDNISOLON [Concomitant]
     Active Substance: PREDNISOLONE
     Dates: start: 202003, end: 202005
  6. HUMIRA [Suspect]
     Active Substance: ADALIMUMAB
     Route: 058
     Dates: start: 2013
  7. HUMIRA [Suspect]
     Active Substance: ADALIMUMAB
     Route: 058
     Dates: start: 201702, end: 2017
  8. LEFLUNOMIDE. [Suspect]
     Active Substance: LEFLUNOMIDE
     Indication: PRODUCT USED FOR UNKNOWN INDICATION
     Route: 065
     Dates: start: 2010
  9. RITUXIMAB. [Concomitant]
     Active Substance: RITUXIMAB
     Indication: PRODUCT USED FOR UNKNOWN INDICATION
  10. PREDNISOLON [Concomitant]
     Active Substance: PREDNISOLONE
     Indication: PRODUCT USED FOR UNKNOWN INDICATION
     Dates: start: 201905, end: 2019
  11. PREDNISOLON [Concomitant]
     Active Substance: PREDNISOLONE
     Dates: start: 201911, end: 2020
  12. PREDNISOLON [Concomitant]
     Active Substance: PREDNISOLONE
     Dates: start: 201908
  13. HUMIRA [Suspect]
     Active Substance: ADALIMUMAB
     Indication: PRODUCT USED FOR UNKNOWN INDICATION
     Route: 058
     Dates: start: 200911
  14. SULFASALAZINE. [Suspect]
     Active Substance: SULFASALAZINE
     Route: 065
     Dates: start: 201812, end: 201901
  15. METHOTREXATE. [Suspect]
     Active Substance: METHOTREXATE
     Indication: PRODUCT USED FOR UNKNOWN INDICATION
     Dosage: 10 MG TO 15 MG
     Route: 048
     Dates: start: 201804, end: 201807
  16. FUCIDIN [Concomitant]
     Active Substance: FUSIDATE SODIUM
     Indication: PSORIASIS
  17. PREDNISOLON [Concomitant]
     Active Substance: PREDNISOLONE
     Dates: start: 202005
  18. SULFASALAZINE. [Suspect]
     Active Substance: SULFASALAZINE
     Route: 065
     Dates: start: 201901, end: 201902
  19. PREDNISOLON [Concomitant]
     Active Substance: PREDNISOLONE
     Dates: start: 201907, end: 201908
  20. LEFLUNOMIDE. [Suspect]
     Active Substance: LEFLUNOMIDE
     Route: 065
     Dates: start: 2015, end: 201803
  21. METHOTREXATE. [Suspect]
     Active Substance: METHOTREXATE
     Route: 058
     Dates: start: 201905, end: 201911
  22. ABATACEPT [Concomitant]
     Active Substance: ABATACEPT
     Indication: PRODUCT USED FOR UNKNOWN INDICATION
     Route: 058
     Dates: start: 201807, end: 201901
  23. NAPROXEN. [Concomitant]
     Active Substance: NAPROXEN
     Indication: PRODUCT USED FOR UNKNOWN INDICATION
  24. SULFASALAZINE. [Suspect]
     Active Substance: SULFASALAZINE
     Indication: PRODUCT USED FOR UNKNOWN INDICATION
     Route: 065
     Dates: end: 201107
  25. METHOTREXATE. [Suspect]
     Active Substance: METHOTREXATE
     Route: 048
     Dates: start: 201807, end: 2018
  26. HUMIRA [Suspect]
     Active Substance: ADALIMUMAB
     Route: 058
     Dates: start: 201401, end: 201403
  27. COSENTYX [Suspect]
     Active Substance: SECUKINUMAB
     Indication: PRODUCT USED FOR UNKNOWN INDICATION
     Route: 065
     Dates: start: 201707, end: 2018
  28. HYDROXYCHLOROQUINE [Suspect]
     Active Substance: HYDROXYCHLOROQUINE
     Route: 065
     Dates: start: 201712, end: 201802
  29. SULFASALAZINE. [Suspect]
     Active Substance: SULFASALAZINE
     Route: 065
     Dates: start: 201611, end: 201701
  30. METHOTREXATE. [Suspect]
     Active Substance: METHOTREXATE
     Route: 048
     Dates: start: 201810
  31. METHOTREXATE. [Suspect]
     Active Substance: METHOTREXATE
     Route: 048
     Dates: start: 201901, end: 201905

REACTIONS (22)
  - Meniscus injury [Unknown]
  - Nodule [Unknown]
  - Mycobacterium tuberculosis complex test positive [Unknown]
  - Emphysema [Unknown]
  - Rheumatoid nodule [Recovering/Resolving]
  - Drug ineffective [Unknown]
  - Joint swelling [Unknown]
  - Chest pain [Unknown]
  - Cough [Unknown]
  - Therapeutic product effect decreased [Unknown]
  - Paraesthesia [Unknown]
  - Dry skin [Unknown]
  - Nausea [Unknown]
  - Treatment noncompliance [Unknown]
  - Condition aggravated [Unknown]
  - Joint injury [Unknown]
  - Myocardial infarction [Unknown]
  - Hypoaesthesia [Unknown]
  - Therapeutic product effect delayed [Unknown]
  - Neuropathy peripheral [Recovering/Resolving]
  - Rash [Unknown]
  - Cough [Recovered/Resolved]

NARRATIVE: CASE EVENT DATE: 2010
